FAERS Safety Report 17925066 (Version 1)
Quarter: 2020Q2

REPORT INFORMATION
  Report Type: Spontaneous
  Country: IT (occurrence: IT)
  Receive Date: 20200622
  Receipt Date: 20200622
  Transmission Date: 20200714
  Serious: Yes (Other)
  Sender: FDA-Public Use
  Company Number: IT-UCBSA-2020023734

PATIENT

DRUGS (1)
  1. CERTOLIZUMAB PEGOL [Suspect]
     Active Substance: CERTOLIZUMAB PEGOL
     Indication: PRODUCT USED FOR UNKNOWN INDICATION
     Dosage: UNK

REACTIONS (7)
  - Treatment failure [Unknown]
  - Musculoskeletal disorder [Unknown]
  - Bronchitis [Unknown]
  - Angiopathy [Unknown]
  - Connective tissue disorder [Unknown]
  - Pneumonia [Unknown]
  - Skin disorder [Unknown]
